FAERS Safety Report 7443366-0 (Version None)
Quarter: 2011Q2

REPORT INFORMATION
  Report Type: 
  Country: None (occurrence: None)
  Receive Date: 20110420
  Receipt Date: 20110315
  Transmission Date: 20111010
  Serious: Yes (Congenital Anomaly, Other)
  Sender: FDA-Public Use
  Company Number: FK201100526

PATIENT
  Age: 28 Year
  Sex: Female

DRUGS (9)
  1. IFOSFAMIDE [Suspect]
     Indication: BURKITT'S LYMPHOMA
     Dosage: 1500 MG/M2, INTRAVENOUS
     Route: 042
  2. MESNA [Suspect]
     Indication: BURKITT'S LYMPHOMA
     Dosage: 1500 MG/M2, INTRAVENOUS
     Route: 042
  3. CYTARABINE [Suspect]
     Indication: BURKITT'S LYMPHOMA
     Dosage: 70 MG, ON DAYS 3, 5, 21, AND 45, INTRATHECAL; 3200 MG/M2, INTRAVENOUS
  4. ALLOPURINOL [Concomitant]
  5. CYCLOPHOSPHAMIDE [Suspect]
     Indication: BURKITT'S LYMPHOMA
     Dosage: 800 MG/M2, ON DAYS 2 THROUGH 5, INTRAVENOUS; 200 MG/M2, ON DAYS 1 THROUGH 5, INTRAVENOUS
  6. RITUXAN [Suspect]
     Indication: BURKITT'S LYMPHOMA
     Dosage: 375 MG/M2, INTRAVENOUS
     Route: 042
  7. VINCRISTINE [Suspect]
     Indication: BURKITT'S LYMPHOMA
     Dosage: 1500 MG/M2, INTRAVENOUS
     Route: 042
  8. DOXORUBICIN HCL [Suspect]
     Indication: BURKITT'S LYMPHOMA
     Dosage: 40 MG/M2, ON DAYS 2 THROUGH 5, INTRAVENOUS
     Route: 042
  9. ETOPOSIDE [Suspect]
     Indication: BURKITT'S LYMPHOMA
     Dosage: 60 MG/M2, INTRAVENOUS
     Route: 042

REACTIONS (15)
  - FEBRILE NEUTROPENIA [None]
  - BLOOD LACTATE DEHYDROGENASE INCREASED [None]
  - PREGNANCY [None]
  - VOMITING [None]
  - EROSIVE OESOPHAGITIS [None]
  - STILLBIRTH [None]
  - UTERINE CONTRACTIONS DURING PREGNANCY [None]
  - PREMATURE BABY [None]
  - AMNIOTIC FLUID VOLUME DECREASED [None]
  - NAUSEA [None]
  - ANTEPARTUM HAEMORRHAGE [None]
  - POSTPARTUM HAEMORRHAGE [None]
  - DRUG EXPOSURE DURING PREGNANCY [None]
  - POSTPARTUM DEPRESSION [None]
  - DRUG EXPOSURE BEFORE PREGNANCY [None]
